FAERS Safety Report 7754363-X (Version None)
Quarter: 2011Q3

REPORT INFORMATION
  Report Type: 
  Country: None (occurrence: None)
  Receive Date: 20110915
  Receipt Date: 20110908
  Transmission Date: 20111222
  Serious: Yes (Hospitalization)
  Sender: FDA-Public Use
  Company Number: FR-PFIZER INC-2011212165

PATIENT
  Age: 79 Year
  Sex: Female

DRUGS (13)
  1. FORLAX [Suspect]
     Dosage: 1 DF, 1X/DAY
     Route: 048
     Dates: start: 20100224
  2. ATORVASTATIN CALCIUM [Suspect]
     Dosage: 10 MG, 1X/DAY
     Route: 048
     Dates: start: 20100425
  3. ASPIRIN [Suspect]
     Dosage: 1 DF, 1X/DAY
     Route: 048
     Dates: start: 20100723
  4. ZOLPIDEM [Suspect]
     Dosage: 1 DF, 1X/DAY
     Route: 048
     Dates: start: 20100224
  5. BONIVA [Suspect]
     Dosage: UNK
     Route: 048
     Dates: start: 20100201, end: 20110520
  6. PAROXETINE HCL [Suspect]
     Dosage: 10 MG, 1X/DAY
  7. ESIDRIX [Suspect]
     Dosage: UNK
     Route: 048
     Dates: start: 20100201, end: 20110420
  8. LEXOMIL [Suspect]
     Dosage: UNK
     Route: 048
     Dates: start: 20100817, end: 20110427
  9. PANTOPRAZOLE SODIUM [Suspect]
     Dosage: 1 DF, 1X/DAY
     Route: 048
     Dates: start: 20100224
  10. ACETAMINOPHEN [Suspect]
     Dosage: UNK
     Route: 048
     Dates: start: 20100224
  11. BISOPROLOL FUMARATE [Suspect]
     Dosage: 1 DF, 1X/DAY
     Route: 048
     Dates: start: 20100224
  12. PAROXETINE HCL [Suspect]
     Dosage: 20 MG, 1X/DAY
     Route: 048
     Dates: start: 20100706
  13. EQUANIL [Suspect]
     Dosage: UNK
     Route: 048
     Dates: start: 20101112, end: 20110513

REACTIONS (4)
  - PRURIGO [None]
  - PRURITUS [None]
  - ECZEMA [None]
  - EOSINOPHILIA [None]
